FAERS Safety Report 5437645-6 (Version None)
Quarter: 2007Q3

REPORT INFORMATION
  Report Type: 
  Country: None (occurrence: None)
  Receive Date: 20070831
  Receipt Date: 20070810
  Transmission Date: 20080115
  Serious: No
  Sender: FDA-Public Use
  Company Number: A0666510A

PATIENT
  Age: 24 Year
  Sex: Female

DRUGS (1)
  1. ALLI [Suspect]
     Route: 048
     Dates: start: 20070626, end: 20070726

REACTIONS (6)
  - ABDOMINAL PAIN UPPER [None]
  - CONSTIPATION [None]
  - DIARRHOEA [None]
  - FREQUENT BOWEL MOVEMENTS [None]
  - PHARMACEUTICAL PRODUCT COMPLAINT [None]
  - STEATORRHOEA [None]
